FAERS Safety Report 15053445 (Version 1)
Quarter: 2018Q2

REPORT INFORMATION
  Report Type: Spontaneous
  Country: US (occurrence: US)
  Receive Date: 20180622
  Receipt Date: 20180622
  Transmission Date: 20180711
  Serious: Yes (Life-Threatening, Hospitalization)
  Sender: FDA-Public Use
  Company Number: US-HERITAGE PHARMACEUTICALS-2018HTG00068

PATIENT
  Sex: Female
  Weight: 108.84 kg

DRUGS (3)
  1. THORAZINE [Suspect]
     Active Substance: CHLORPROMAZINE
     Dosage: UNK
     Dates: start: 1988
  2. TETRACYCLINE HYDROCHLORIDE. [Suspect]
     Active Substance: TETRACYCLINE HYDROCHLORIDE
     Dosage: UNK
     Dates: start: 1988, end: 1988
  3. TETRACYCLINE HYDROCHLORIDE. [Suspect]
     Active Substance: TETRACYCLINE HYDROCHLORIDE
     Dosage: UNK

REACTIONS (14)
  - Contraindicated product administered [Recovered/Resolved]
  - Disturbance in attention [Recovered/Resolved]
  - Psychotic disorder [Recovered/Resolved]
  - Cognitive disorder [Recovered/Resolved]
  - Chronic obstructive pulmonary disease [Recovered/Resolved]
  - Pruritus generalised [Recovered/Resolved]
  - Hypersensitivity [Recovered/Resolved]
  - Feeding disorder [Unknown]
  - Malaise [Unknown]
  - Asthma [Recovered/Resolved]
  - Hypoaesthesia [Recovered/Resolved]
  - Facial paralysis [Recovered/Resolved]
  - Decreased activity [Unknown]
  - Cardiac arrest [Recovered/Resolved]

NARRATIVE: CASE EVENT DATE: 1988
